FAERS Safety Report 25759853 (Version 1)
Quarter: 2025Q3

REPORT INFORMATION
  Report Type: Spontaneous
  Country: CN (occurrence: CN)
  Receive Date: 20250904
  Receipt Date: 20250904
  Transmission Date: 20251020
  Serious: Yes (Hospitalization, Other)
  Sender: ARGENX BVBA
  Company Number: CN-ARGENX-2025-ARGX-CN011865

PATIENT

DRUGS (1)
  1. VYVGART [Suspect]
     Active Substance: EFGARTIGIMOD ALFA-FCAB
     Indication: Myasthenia gravis
     Dosage: 800 MG, 1/WEEK
     Route: 041
     Dates: start: 20250609, end: 20250702

REACTIONS (3)
  - Myasthenia gravis [Unknown]
  - Off label use [Unknown]
  - Drug ineffective [Unknown]
